FAERS Safety Report 19157882 (Version 1)
Quarter: 2021Q2

REPORT INFORMATION
  Report Type: Spontaneous
  Country: FR (occurrence: FR)
  Receive Date: 20210420
  Receipt Date: 20210420
  Transmission Date: 20210717
  Serious: Yes (Death, Other)
  Sender: FDA-Public Use
  Company Number: FR-RISING PHARMA HOLDINGS, INC.-2021RIS000036

PATIENT
  Age: 30 Year
  Sex: Female

DRUGS (1)
  1. AZATHIOPRINE. [Suspect]
     Active Substance: AZATHIOPRINE
     Indication: CROHN^S DISEASE
     Dosage: 125 MILLIGRAM, QD
     Route: 065

REACTIONS (5)
  - Exposure during pregnancy [Unknown]
  - Pruritus [Unknown]
  - Product use in unapproved indication [Unknown]
  - Foetal death [Fatal]
  - Cholestasis [Unknown]
